FAERS Safety Report 9285553 (Version 2)
Quarter: 2013Q4

REPORT INFORMATION
  Report Type: Spontaneous
  Country: US (occurrence: US)
  Receive Date: 20130513
  Receipt Date: 20131115
  Transmission Date: 20140711
  Serious: Yes (Other)
  Sender: FDA-Public Use
  Company Number: US-ROCHE-751368

PATIENT
  Age: 24 Year
  Sex: Female
  Weight: 59.02 kg

DRUGS (3)
  1. ACCUTANE [Suspect]
     Indication: ACNE
     Route: 065
     Dates: start: 19960901, end: 19970131
  2. ACCUTANE [Suspect]
     Route: 065
     Dates: start: 19991228, end: 20000329
  3. ACCUTANE [Suspect]
     Route: 065

REACTIONS (18)
  - Crohn^s disease [Unknown]
  - Colitis ulcerative [Unknown]
  - Inflammatory bowel disease [Unknown]
  - Irritable bowel syndrome [Unknown]
  - Emotional distress [Unknown]
  - Major depression [Unknown]
  - Suicidal ideation [Unknown]
  - Barrett^s oesophagus [Unknown]
  - Gastric ulcer [Unknown]
  - Oesophageal ulcer [Unknown]
  - Hiatus hernia [Unknown]
  - Dysphonia [Unknown]
  - Abdominal distension [Unknown]
  - Local swelling [Unknown]
  - Tooth disorder [Unknown]
  - Myalgia [Unknown]
  - Musculoskeletal stiffness [Unknown]
  - Dry skin [Unknown]
